FAERS Safety Report 5446775-4 (Version None)
Quarter: 2007Q3

REPORT INFORMATION
  Report Type: 
  Country: None (occurrence: None)
  Receive Date: 20070907
  Receipt Date: 20070828
  Transmission Date: 20080115
  Serious: Yes (Other)
  Sender: FDA-Public Use
  Company Number: JP-PFIZER INC-2007072188

PATIENT
  Sex: Male
  Weight: 48.2 kg

DRUGS (11)
  1. ZITHROMAC [Suspect]
     Indication: PNEUMONIA
     Route: 048
     Dates: start: 20070111, end: 20070113
  2. BIAPENEM [Suspect]
     Indication: PNEUMONIA
     Route: 042
     Dates: start: 20070111, end: 20070118
  3. ITRIZOLE [Concomitant]
     Route: 048
     Dates: start: 20060117, end: 20070319
  4. DOGMATYL [Concomitant]
     Route: 048
  5. BLADDERON [Concomitant]
     Route: 048
  6. ALINAMIN F [Concomitant]
     Route: 048
  7. ASPIRIN [Concomitant]
     Route: 048
  8. PURSENNID [Concomitant]
     Route: 048
  9. FRANDOL [Concomitant]
     Route: 062
  10. DILTIAZEM HCL [Concomitant]
     Route: 048
  11. CONSTAN [Concomitant]
     Route: 048

REACTIONS (1)
  - ANOSMIA [None]
